FAERS Safety Report 5929337-1 (Version None)
Quarter: 2008Q4

REPORT INFORMATION
  Report Type: 
  Country: None (occurrence: None)
  Receive Date: 20081023
  Receipt Date: 20081023
  Transmission Date: 20090506
  Serious: Yes (Hospitalization)
  Sender: FDA-Public Use
  Company Number: None

PATIENT
  Age: 91 Year
  Sex: Male
  Weight: 94.08 kg

DRUGS (1)
  1. TRAMADOL HCL [Suspect]
     Indication: PAIN
     Dosage: 50 MG TID PO
     Route: 048
     Dates: start: 20081016, end: 20081017

REACTIONS (13)
  - BLOOD GLUCOSE INCREASED [None]
  - COLD SWEAT [None]
  - CONFUSIONAL STATE [None]
  - DROOLING [None]
  - DYSPNOEA [None]
  - FEELING COLD [None]
  - NAUSEA [None]
  - PULSE ABSENT [None]
  - RESPIRATORY DEPRESSION [None]
  - SEDATION [None]
  - SPEECH DISORDER [None]
  - UNRESPONSIVE TO STIMULI [None]
  - VOMITING [None]
